FAERS Safety Report 8480471-4 (Version None)
Quarter: 2012Q3

REPORT INFORMATION
  Report Type: 
  Country: None (occurrence: None)
  Receive Date: 20120702
  Receipt Date: 20120620
  Transmission Date: 20120928
  Serious: Yes (Hospitalization)
  Sender: FDA-Public Use
  Company Number: DE-BIOGENIDEC-2012BI021929

PATIENT
  Age: 26 Year
  Sex: Female
  Weight: 56 kg

DRUGS (1)
  1. AVONEX [Suspect]
     Indication: RELAPSING-REMITTING MULTIPLE SCLEROSIS
     Route: 030
     Dates: start: 20080930

REACTIONS (2)
  - VISUAL IMPAIRMENT [None]
  - SENSORY DISTURBANCE [None]
